FAERS Safety Report 6093333-7 (Version None)
Quarter: 2009Q1

REPORT INFORMATION
  Report Type: 
  Country: None (occurrence: None)
  Receive Date: 20090226
  Receipt Date: 20090218
  Transmission Date: 20090719
  Serious: Yes (Hospitalization)
  Sender: FDA-Public Use
  Company Number: US-BAYER-200913898GPV

PATIENT
  Age: 24 Year
  Sex: Male

DRUGS (3)
  1. CIPROFLOXACIN [Suspect]
     Indication: TYPHOID FEVER
     Route: 065
  2. CEFTRIAXONE [Concomitant]
     Indication: TYPHOID FEVER
     Route: 042
  3. CEFTRIAXONE [Concomitant]
     Route: 065

REACTIONS (6)
  - CHILLS [None]
  - DIARRHOEA [None]
  - NAUSEA [None]
  - PYREXIA [None]
  - TYPHOID FEVER [None]
  - VOMITING [None]
